FAERS Safety Report 6304406-5 (Version None)
Quarter: 2009Q3

REPORT INFORMATION
  Report Type: 
  Country: None (occurrence: None)
  Receive Date: 20090811
  Receipt Date: 20090806
  Transmission Date: 20100115
  Serious: Yes (Death, Hospitalization)
  Sender: FDA-Public Use
  Company Number: PHHY2009BR20225

PATIENT
  Age: 85 Year
  Sex: Female

DRUGS (1)
  1. MIACALCIN [Suspect]
     Indication: OSTEOPOROSIS
     Dosage: 100 IU/ML, UNK
     Dates: start: 20010101

REACTIONS (2)
  - ABDOMINAL PAIN [None]
  - GALLBLADDER CANCER [None]
